FAERS Safety Report 18948786 (Version 1)
Quarter: 2021Q1

REPORT INFORMATION
  Report Type: Spontaneous
  Country: US (occurrence: US)
  Receive Date: 20210226
  Receipt Date: 20210226
  Transmission Date: 20210420
  Serious: No
  Sender: FDA-Public Use
  Company Number: US-ROCHE-2422847

PATIENT
  Sex: Female

DRUGS (1)
  1. XOLAIR [Suspect]
     Active Substance: OMALIZUMAB
     Indication: ASTHMA
     Dosage: SD PFS 150 MG/ML
     Route: 058
     Dates: start: 20190107

REACTIONS (3)
  - Therapeutic product effect decreased [Unknown]
  - Product quality issue [Unknown]
  - No adverse event [Unknown]
